FAERS Safety Report 5171294-2 (Version None)
Quarter: 2006Q4

REPORT INFORMATION
  Report Type: 
  Country: None (occurrence: None)
  Receive Date: 20061213
  Receipt Date: 20060719
  Transmission Date: 20070319
  Serious: Yes (Other)
  Sender: FDA-Public Use
  Company Number: US-AMGEN-KDL186837

PATIENT
  Sex: Female
  Weight: 63.6 kg

DRUGS (5)
  1. ENBREL [Suspect]
     Indication: RHEUMATOID ARTHRITIS
     Route: 058
     Dates: start: 20010807, end: 20060214
  2. AZULFIDINE [Concomitant]
     Dates: start: 20060418
  3. HUMIRA [Concomitant]
     Dates: start: 20060516
  4. SYNTHROID [Concomitant]
     Dates: start: 19981201
  5. MOTRIN [Concomitant]
     Dates: start: 20060214

REACTIONS (3)
  - CONDITION AGGRAVATED [None]
  - DERMATITIS ALLERGIC [None]
  - THROMBOCYTOPENIA [None]
